FAERS Safety Report 5144198-9 (Version None)
Quarter: 2006Q4

REPORT INFORMATION
  Report Type: 
  Country: None (occurrence: None)
  Receive Date: 20061106
  Receipt Date: 20060921
  Transmission Date: 20070319
  Serious: Yes (Other)
  Sender: FDA-Public Use
  Company Number: FR-ROCHE-464526

PATIENT
  Age: 45 Year
  Sex: Male
  Weight: 65 kg

DRUGS (4)
  1. PEGASYS [Suspect]
     Indication: HEPATITIS C
     Route: 058
     Dates: start: 20050615
  2. COPEGUS [Suspect]
     Indication: DRUG USE FOR UNKNOWN INDICATION
     Route: 065
     Dates: start: 20050615
  3. TERALITHE [Interacting]
     Indication: DRUG USE FOR UNKNOWN INDICATION
     Dosage: DRUG NAME REPORTED AS ^THERALITHE^.
     Route: 065
  4. ZELITREX [Concomitant]

REACTIONS (3)
  - DRUG EFFECT DECREASED [None]
  - DRUG INTERACTION [None]
  - HYPERTHYROIDISM [None]
